FAERS Safety Report 19139524 (Version 7)
Quarter: 2021Q4

REPORT INFORMATION
  Report Type: Report from Study
  Country: US (occurrence: US)
  Receive Date: 20210415
  Receipt Date: 20211207
  Transmission Date: 20220303
  Serious: Yes (Other)
  Sender: FDA-Public Use
  Company Number: NVSC2021US081890

PATIENT
  Age: 56 Year
  Sex: Female

DRUGS (1)
  1. KESIMPTA [Suspect]
     Active Substance: OFATUMUMAB
     Indication: Multiple sclerosis
     Dosage: 20 MG, QMO (LAST ADMINISTRATION DOSE DATE WAS REPORTED AS 09 APR 2021)
     Route: 058
     Dates: start: 20210408

REACTIONS (8)
  - Partial seizures [Unknown]
  - Visual impairment [Unknown]
  - Alopecia [Unknown]
  - Sensory disturbance [Not Recovered/Not Resolved]
  - Aphasia [Unknown]
  - Pain [Not Recovered/Not Resolved]
  - Insomnia [Recovering/Resolving]
  - Headache [Recovered/Resolved]

NARRATIVE: CASE EVENT DATE: 20210408
